FAERS Safety Report 14546725 (Version 1)
Quarter: 2018Q1

REPORT INFORMATION
  Report Type: Spontaneous
  Country: SK (occurrence: SK)
  Receive Date: 20180219
  Receipt Date: 20180219
  Transmission Date: 20180509
  Serious: Yes (Death, Hospitalization)
  Sender: FDA-Public Use
  Company Number: SK-ELI_LILLY_AND_COMPANY-SK201802006696

PATIENT
  Age: 62 Year
  Sex: Male

DRUGS (3)
  1. GEMCITABINE HYDROCHLORIDE. [Suspect]
     Active Substance: GEMCITABINE HYDROCHLORIDE
     Indication: PANCREATIC CARCINOMA
     Dosage: 3000 MG/M2, CYCLICAL
     Route: 041
     Dates: start: 20160818
  2. ABRAXANE [Suspect]
     Active Substance: PACLITAXEL
     Indication: PANCREATIC CARCINOMA
     Dosage: 375 MG/M2, CYCLICAL
     Route: 041
     Dates: start: 20160818
  3. ABRAXANE [Suspect]
     Active Substance: PACLITAXEL
     Dosage: 300 MG/M2, CYCLICAL
     Route: 041
     Dates: start: 201703

REACTIONS (9)
  - Death [Fatal]
  - Melaena [Fatal]
  - Oral herpes [Fatal]
  - Anaemia [Fatal]
  - Off label use [Unknown]
  - Inappropriate schedule of drug administration [Unknown]
  - Haematemesis [Fatal]
  - Malignant neoplasm progression [Fatal]
  - Fatigue [Fatal]

NARRATIVE: CASE EVENT DATE: 20160818
